FAERS Safety Report 11933554 (Version 2)
Quarter: 2016Q1

REPORT INFORMATION
  Report Type: Spontaneous
  Country: JP (occurrence: JP)
  Receive Date: 20160121
  Receipt Date: 20160202
  Transmission Date: 20160526
  Serious: Yes (Hospitalization)
  Sender: FDA-Public Use
  Company Number: JP-ROCHE-1698082

PATIENT
  Age: 70 Year
  Sex: Male

DRUGS (4)
  1. BUP-4 [Concomitant]
     Active Substance: PROPIVERINE
     Indication: PROPHYLAXIS
     Route: 048
     Dates: end: 20160114
  2. RASILEZ [Concomitant]
     Active Substance: ALISKIREN
     Route: 048
  3. NEXIUM [Concomitant]
     Active Substance: ESOMEPRAZOLE MAGNESIUM
     Route: 048
  4. TAMIFLU [Suspect]
     Active Substance: OSELTAMIVIR PHOSPHATE
     Indication: ANTIVIRAL PROPHYLAXIS
     Dosage: LAST DOSE ON 12/JAN/2016.
     Route: 048
     Dates: start: 20160108

REACTIONS (2)
  - Urinary retention [Unknown]
  - Haematuria [Unknown]

NARRATIVE: CASE EVENT DATE: 20160113
